FAERS Safety Report 5774295-6 (Version None)
Quarter: 2008Q2

REPORT INFORMATION
  Report Type: 
  Country: None (occurrence: None)
  Receive Date: 20080616
  Receipt Date: 20080603
  Transmission Date: 20081010
  Serious: Yes (Hospitalization, Other)
  Sender: FDA-Public Use
  Company Number: JP-NOVOPROD-276217

PATIENT
  Age: 71 Year
  Sex: Male
  Weight: 60 kg

DRUGS (4)
  1. NOVORAPID CHU PENFILL [Suspect]
     Indication: TYPE 2 DIABETES MELLITUS
     Dosage: UNK IU, QD
     Dates: start: 20060401, end: 20080101
  2. NOVOLIN R PENFILL CHU [Suspect]
     Indication: TYPE 2 DIABETES MELLITUS
     Dosage: 34 IU, QD
     Dates: start: 20031001, end: 20060401
  3. NOVOLIN R PENFILL CHU [Suspect]
     Dosage: 26 IU, QD
     Dates: start: 20060401, end: 20060401
  4. PENFILL N CHU [Suspect]
     Indication: TYPE 2 DIABETES MELLITUS
     Dosage: 8 UNK, UNK
     Dates: start: 20010101, end: 20060501

REACTIONS (5)
  - ANTI-INSULIN ANTIBODY [None]
  - BLOOD GLUCOSE INCREASED [None]
  - CYTOMEGALOVIRUS ENTEROCOLITIS [None]
  - HYPOGLYCAEMIA [None]
  - PANCYTOPENIA [None]
